FAERS Safety Report 12036801 (Version 1)
Quarter: 2016Q1

REPORT INFORMATION
  Report Type: Spontaneous
  Country: IT (occurrence: IT)
  Receive Date: 20160208
  Receipt Date: 20160208
  Transmission Date: 20160526
  Serious: Yes (Other)
  Sender: FDA-Public Use
  Company Number: IT-HOSPIRA-3158503

PATIENT
  Age: 22 Year
  Sex: Male

DRUGS (15)
  1. INFLIXIMAB [Suspect]
     Active Substance: INFLIXIMAB
     Indication: BEHCET^S SYNDROME
     Route: 041
     Dates: start: 200204, end: 200206
  2. MYCOPHENOLATE [Suspect]
     Active Substance: MYCOPHENOLIC ACID
     Indication: BEHCET^S SYNDROME
     Dates: start: 200601, end: 200703
  3. PREDNISONE. [Concomitant]
     Active Substance: PREDNISONE
     Indication: BEHCET^S SYNDROME
     Dosage: DECREASED FROM 0.37 TO 0.11 MG/KG/DAY
     Route: 048
     Dates: start: 200704, end: 201410
  4. AZATHIOPRINE. [Suspect]
     Active Substance: AZATHIOPRINE
     Indication: BEHCET^S SYNDROME
     Dates: start: 200202, end: 200204
  5. CYCLOSPORINE. [Suspect]
     Active Substance: CYCLOSPORINE
     Indication: BEHCET^S SYNDROME
     Dates: start: 200107, end: 20020101
  6. AZATHIOPRINE. [Suspect]
     Active Substance: AZATHIOPRINE
     Indication: BEHCET^S SYNDROME
     Dates: start: 200501, end: 200509
  7. METHOTREXATE [Suspect]
     Active Substance: METHOTREXATE
     Indication: BEHCET^S SYNDROME
     Dates: start: 200003, end: 200010
  8. CHLORAMBUCIL [Suspect]
     Active Substance: CHLORAMBUCIL
     Indication: BEHCET^S SYNDROME
     Dates: start: 200011, end: 200107
  9. PREDNISONE. [Concomitant]
     Active Substance: PREDNISONE
     Indication: BEHCET^S SYNDROME
     Dosage: DECREASED FROM 0.37 TO 0.11 MG/KG/DAY
     Route: 048
     Dates: start: 200704, end: 201410
  10. PREDNISONE. [Concomitant]
     Active Substance: PREDNISONE
     Indication: BEHCET^S SYNDROME
     Dosage: DAILY
  11. PREDNISONE. [Concomitant]
     Active Substance: PREDNISONE
     Indication: BEHCET^S SYNDROME
     Dosage: DOSE NEVER LOWER THAN 0.5 MG/KG/DAY; DAILY
  12. METHOTREXATE [Suspect]
     Active Substance: METHOTREXATE
     Indication: BEHCET^S SYNDROME
     Dates: start: 199902, end: 200002
  13. METHOTREXATE [Suspect]
     Active Substance: METHOTREXATE
     Indication: BEHCET^S SYNDROME
     Dates: start: 200202, end: 200204
  14. CYCLOSPORINE. [Suspect]
     Active Substance: CYCLOSPORINE
     Indication: BEHCET^S SYNDROME
     Dates: start: 199902, end: 200002
  15. INTERFERON ALFA NOS [Suspect]
     Active Substance: INTERFERON ALFA-2A OR INTERFERON ALFA-2B
     Indication: BEHCET^S SYNDROME
     Dosage: 9-12 M/U
     Dates: start: 200003, end: 200010

REACTIONS (11)
  - Leukopenia [Unknown]
  - Legionella infection [Unknown]
  - Depression [Unknown]
  - Nephropathy toxic [Unknown]
  - Hepatotoxicity [Unknown]
  - Suicidal ideation [Unknown]
  - Haematuria [Unknown]
  - Pulmonary tuberculosis [Unknown]
  - Pneumonia [Unknown]
  - Nephrolithiasis [Unknown]
  - Proteinuria [Unknown]

NARRATIVE: CASE EVENT DATE: 200002
